FAERS Safety Report 14116125 (Version 1)
Quarter: 2017Q4

REPORT INFORMATION
  Report Type: Spontaneous
  Country: US (occurrence: US)
  Receive Date: 20171023
  Receipt Date: 20171023
  Transmission Date: 20180321
  Serious: No
  Sender: FDA-Public Use
  Company Number: US-009507513-1710USA009556

PATIENT
  Age: 48 Year
  Sex: Female

DRUGS (4)
  1. NOXAFIL [Suspect]
     Active Substance: POSACONAZOLE
     Dosage: 300 MG, QD, MAINTENANCE
     Route: 042
  2. CANCIDAS [Suspect]
     Active Substance: CASPOFUNGIN ACETATE
     Dosage: 50 MG, QD, MAINTENANCE
  3. CANCIDAS [Suspect]
     Active Substance: CASPOFUNGIN ACETATE
     Indication: MUCORMYCOSIS
     Dosage: 70 MG, QD
  4. NOXAFIL [Suspect]
     Active Substance: POSACONAZOLE
     Indication: MUCORMYCOSIS
     Dosage: 300 MG, BID
     Route: 042

REACTIONS (1)
  - Off label use [Unknown]
